FAERS Safety Report 24075286 (Version 2)
Quarter: 2024Q3

REPORT INFORMATION
  Report Type: Spontaneous
  Country: JP (occurrence: JP)
  Receive Date: 20240710
  Receipt Date: 20240913
  Transmission Date: 20241017
  Serious: Yes (Other)
  Sender: BAYER
  Company Number: JP-BAYER-2024A095609

PATIENT
  Age: 39 Year
  Sex: Female

DRUGS (1)
  1. MIRENA [Suspect]
     Active Substance: LEVONORGESTREL
     Indication: Heavy menstrual bleeding
     Dosage: 20?G/DAY
     Route: 015

REACTIONS (6)
  - Hydronephrosis [Recovering/Resolving]
  - Renal impairment [Recovering/Resolving]
  - Uterine leiomyoma [Recovering/Resolving]
  - Device difficult to use [Recovered/Resolved]
  - Oedema peripheral [Recovering/Resolving]
  - Weight increased [Recovering/Resolving]
